FAERS Safety Report 25478846 (Version 3)
Quarter: 2025Q3

REPORT INFORMATION
  Report Type: Spontaneous
  Country: US (occurrence: US)
  Receive Date: 20250625
  Receipt Date: 20250911
  Transmission Date: 20251020
  Serious: Yes (Hospitalization, Other)
  Sender: ALEXION PHARMACEUTICALS
  Company Number: US-AstraZeneca-CH-00897353A

PATIENT
  Sex: Male

DRUGS (2)
  1. CRESTOR [Suspect]
     Active Substance: ROSUVASTATIN CALCIUM
     Route: 065
  2. ROSUVASTATIN [Suspect]
     Active Substance: ROSUVASTATIN

REACTIONS (24)
  - Gout [Recovered/Resolved]
  - Pain in extremity [Unknown]
  - Lupus-like syndrome [Unknown]
  - Pain [Not Recovered/Not Resolved]
  - Musculoskeletal pain [Not Recovered/Not Resolved]
  - Back pain [Not Recovered/Not Resolved]
  - Hand fracture [Unknown]
  - Renal impairment [Unknown]
  - Therapeutic response changed [Unknown]
  - Blood triglycerides increased [Unknown]
  - Gait disturbance [Unknown]
  - Intentional product misuse [Not Recovered/Not Resolved]
  - Wrong technique in product usage process [Not Recovered/Not Resolved]
  - Haematocrit increased [Unknown]
  - Insurance issue [Unknown]
  - Drug effect less than expected [Unknown]
  - Product quality issue [Unknown]
  - Blood triglycerides abnormal [Unknown]
  - Spinal stenosis [Unknown]
  - Dysstasia [Unknown]
  - Therapy cessation [Unknown]
  - Illness [Unknown]
  - Bell^s palsy [Unknown]
  - Adenoma benign [Unknown]

NARRATIVE: CASE EVENT DATE: 20150101
